FAERS Safety Report 17523578 (Version 1)
Quarter: 2020Q1

REPORT INFORMATION
  Report Type: Report from Study
  Country: None (occurrence: FR)
  Receive Date: 20200311
  Receipt Date: 20200311
  Transmission Date: 20200409
  Serious: Yes (Life-Threatening, Hospitalization)
  Sender: FDA-Public Use
  Company Number: FR-ABBVIE-17K-056-3091930-00

PATIENT
  Age: 57 Year
  Sex: Male
  Weight: 87 kg

DRUGS (8)
  1. LEDERFOLINE [Concomitant]
     Active Substance: LEUCOVORIN CALCIUM
     Indication: PRODUCT USED FOR UNKNOWN INDICATION
     Dosage: ON SUNDAY
     Route: 065
  2. IBRUTINIB [Suspect]
     Active Substance: IBRUTINIB
     Indication: CHRONIC LYMPHOCYTIC LEUKAEMIA
     Route: 048
     Dates: start: 20150820, end: 20170808
  3. ZELITREX [Concomitant]
     Active Substance: VALACYCLOVIR HYDROCHLORIDE
     Indication: PRODUCT USED FOR UNKNOWN INDICATION
     Route: 065
  4. IBRUTINIB [Suspect]
     Active Substance: IBRUTINIB
     Indication: CHRONIC LYMPHOCYTIC LEUKAEMIA
     Route: 048
     Dates: start: 20150831, end: 20170808
  5. IBRUTINIB [Suspect]
     Active Substance: IBRUTINIB
     Dosage: THE DOSAGE BY HALF AFTER 1 YEAR OF TREATMENT
     Route: 048
  6. BACTRIM [Concomitant]
     Active Substance: SULFAMETHOXAZOLE\TRIMETHOPRIM
     Indication: PRODUCT USED FOR UNKNOWN INDICATION
     Dosage: ON MON-WED-FRI
     Route: 065
  7. DERMOVAL [Concomitant]
     Indication: PURPURA
     Dosage: 1 APPLICATION
  8. COLCHICINE. [Concomitant]
     Active Substance: COLCHICINE
     Indication: PRODUCT USED FOR UNKNOWN INDICATION
     Route: 065

REACTIONS (2)
  - Acute respiratory failure [Recovered/Resolved with Sequelae]
  - Pyrexia [Recovering/Resolving]

NARRATIVE: CASE EVENT DATE: 20170808
